FAERS Safety Report 9422928 (Version 3)
Quarter: 2013Q3

REPORT INFORMATION
  Report Type: Report from Study
  Country: US (occurrence: US)
  Receive Date: 20130726
  Receipt Date: 20130823
  Transmission Date: 20140515
  Serious: Yes (Hospitalization)
  Sender: FDA-Public Use
  Company Number: US-JNJFOC-20130712314

PATIENT
  Age: 52 Year
  Sex: Female

DRUGS (19)
  1. REMICADE [Suspect]
     Indication: RHEUMATOID ARTHRITIS
     Route: 042
  2. REMICADE [Suspect]
     Indication: RHEUMATOID ARTHRITIS
     Route: 042
     Dates: end: 20130628
  3. ADVAIR DISKUS [Concomitant]
     Route: 065
  4. ASTEPRO NASAL SPRAY [Concomitant]
     Dosage: ^1590^
     Route: 045
  5. CLONAZEPAM [Concomitant]
     Route: 045
  6. DEXILANT [Concomitant]
     Route: 045
  7. FLUOXETINE [Concomitant]
     Route: 045
  8. NYSTATIN [Concomitant]
     Dosage: 100,000
     Route: 045
  9. PREDNISONE [Concomitant]
     Route: 065
  10. PREMARIN [Concomitant]
     Route: 065
  11. FLUTICASONE [Concomitant]
     Route: 065
  12. HYDROCODONE [Concomitant]
     Route: 065
  13. LEVOTHYROXINE [Concomitant]
     Route: 065
  14. LOSARTAN [Concomitant]
     Route: 065
  15. METOPROLOL TARTRATE [Concomitant]
     Route: 065
  16. QUETIAPINE [Concomitant]
     Route: 065
  17. SPIRIVA [Concomitant]
     Route: 065
  18. TRAZODONE [Concomitant]
     Route: 065
  19. VENTOLIN HFA [Concomitant]
     Route: 065

REACTIONS (7)
  - Fall [Recovering/Resolving]
  - Facial bones fracture [Recovering/Resolving]
  - Jaw fracture [Recovering/Resolving]
  - Wrist fracture [Recovering/Resolving]
  - Vertigo [Recovering/Resolving]
  - Drug hypersensitivity [Recovering/Resolving]
  - Pneumonia [Recovering/Resolving]
